FAERS Safety Report 15296356 (Version 1)
Quarter: 2018Q3

REPORT INFORMATION
  Report Type: Spontaneous
  Country: US (occurrence: US)
  Receive Date: 20180807
  Receipt Date: 20180807
  Transmission Date: 20181010
  Serious: Yes (Hospitalization)
  Sender: FDA-Public Use
  Company Number: None

PATIENT

DRUGS (5)
  1. MISOPROSTOL. [Concomitant]
     Active Substance: MISOPROSTOL
  2. BACLOFEN. [Concomitant]
     Active Substance: BACLOFEN
  3. AMPYRA [Concomitant]
     Active Substance: DALFAMPRIDINE
  4. IRON [Concomitant]
     Active Substance: IRON
  5. REBIF [Suspect]
     Active Substance: INTERFERON BETA-1A
     Indication: MULTIPLE SCLEROSIS
     Route: 058
     Dates: start: 20160719

REACTIONS (2)
  - Multiple sclerosis [None]
  - Hospitalisation [None]
